FAERS Safety Report 16073474 (Version 9)
Quarter: 2020Q4

REPORT INFORMATION
  Report Type: Spontaneous
  Country: FR (occurrence: FR)
  Receive Date: 20190314
  Receipt Date: 20201218
  Transmission Date: 20210113
  Serious: Yes (Hospitalization, Other)
  Sender: FDA-Public Use
  Company Number: FR-MYLANLABS-2019M1022783

PATIENT
  Age: 23 Year
  Sex: Male
  Weight: 49 kg

DRUGS (36)
  1. VANCOMYCIN [Suspect]
     Active Substance: VANCOMYCIN
     Dosage: 32 GRAM
     Route: 042
     Dates: start: 20081220, end: 20090112
  2. LOVENOX [Suspect]
     Active Substance: ENOXAPARIN SODIUM
     Indication: PRODUCT USED FOR UNKNOWN INDICATION
     Dosage: 1 DOSAGE FORM, QD
     Route: 058
     Dates: start: 20081224
  3. PEVARYL                            /00418501/ [Suspect]
     Active Substance: ECONAZOLE NITRATE
     Indication: RASH
     Dosage: 2 DOSAGE FORM
     Route: 061
     Dates: start: 20090114
  4. METHYLPREDNISOLONE SODIUM SUCCINATE. [Suspect]
     Active Substance: METHYLPREDNISOLONE SODIUM SUCCINATE
     Indication: CROHN^S DISEASE
     Dosage: 100 MILLIGRAM
     Route: 042
     Dates: start: 20090120
  5. METHYLPREDNISOLONE SODIUM SUCCINATE. [Suspect]
     Active Substance: METHYLPREDNISOLONE SODIUM SUCCINATE
     Dosage: UNK
     Route: 042
     Dates: start: 20081112, end: 20091112
  6. TRIFLUCAN [Concomitant]
     Active Substance: FLUCONAZOLE
     Indication: RASH
     Dosage: 200 MILLIGRAM, QD
     Route: 048
     Dates: start: 20090106, end: 20090130
  7. TRIFLUCAN [Concomitant]
     Active Substance: FLUCONAZOLE
     Dosage: 200 MILLIGRAM, QD
     Route: 048
     Dates: start: 20090119, end: 20090130
  8. FLUCONAZOLE. [Suspect]
     Active Substance: FLUCONAZOLE
     Dosage: 200 MILLIGRAM, BID
     Route: 048
     Dates: start: 20090106, end: 20090130
  9. PRIMAXIN IV [Suspect]
     Active Substance: CILASTATIN SODIUM\IMIPENEM
     Indication: ABSCESS
     Dosage: UNK
     Route: 042
     Dates: start: 20081222, end: 20090112
  10. SOLU-MEDROL [Suspect]
     Active Substance: METHYLPREDNISOLONE SODIUM SUCCINATE
     Indication: CROHN^S DISEASE
     Dosage: 100 MILLIGRAM
     Route: 042
     Dates: start: 20090120
  11. LEKOVIT CA [Suspect]
     Active Substance: CALCIUM CARBONATE\CHOLECALCIFEROL
     Indication: PRODUCT USED FOR UNKNOWN INDICATION
     Dosage: 1 DOSAGE FORM, QD
     Route: 048
     Dates: start: 20081227
  12. CILASTATIN SODIUM W/IMIPENEM [Suspect]
     Active Substance: CILASTATIN SODIUM\IMIPENEM
     Indication: ABSCESS
     Dosage: UNK
     Route: 042
     Dates: start: 20081222, end: 20090112
  13. VANCOMYCIN [Suspect]
     Active Substance: VANCOMYCIN
     Dosage: 2 GRAM, QD
     Route: 042
     Dates: start: 20081222, end: 20090112
  14. CLORAZEPATE DIPOTASSIUM. [Suspect]
     Active Substance: CLORAZEPATE DIPOTASSIUM
     Indication: ANXIETY
     Dosage: 1 DOSAGE FORM, QD
     Route: 042
     Dates: start: 20081222, end: 20090123
  15. FLUCONAZOLE. [Suspect]
     Active Substance: FLUCONAZOLE
     Indication: RASH
     Dosage: 100 MILLIGRAM, QD
     Route: 048
     Dates: start: 20090106, end: 20090118
  16. AERIUS (DESLORATADINE) [Suspect]
     Active Substance: DESLORATADINE
     Indication: RASH
     Dosage: 1 DOSAGE FORM, QD,GENERIC REPORTED AS EBASTINE
     Route: 048
     Dates: start: 20090107
  17. REMICADE [Suspect]
     Active Substance: INFLIXIMAB
     Indication: ABSCESS
     Dosage: 100 MILLIGRAM
     Route: 042
     Dates: start: 20090120
  18. TIENAM [Suspect]
     Active Substance: CILASTATIN SODIUM\IMIPENEM
     Indication: ABSCESS
     Dosage: UNK
     Route: 042
     Dates: start: 20081222, end: 20090112
  19. ALANINE [Suspect]
     Active Substance: ALANINE
     Indication: PARENTERAL NUTRITION
     Dosage: 4000 MILLILITER, QD
     Route: 041
     Dates: start: 20081228, end: 20090207
  20. METHYLPREDNISOLONE SODIUM SUCCINATE. [Suspect]
     Active Substance: METHYLPREDNISOLONE SODIUM SUCCINATE
     Indication: ABSCESS
     Dosage: UNK
     Route: 042
     Dates: start: 20081222, end: 20091112
  21. SPECIAFOLDINE [Suspect]
     Active Substance: FOLIC ACID
     Indication: PRODUCT USED FOR UNKNOWN INDICATION
     Dosage: 3 DOSAGE FORM, QD
     Route: 048
     Dates: start: 20081223
  22. CACIT                              /00944201/ [Suspect]
     Active Substance: CALCIUM CARBONATE\CHOLECALCIFEROL
     Indication: PRODUCT USED FOR UNKNOWN INDICATION
     Dosage: 1 DOSAGE FORM, QD
     Route: 048
     Dates: start: 20081227
  23. STRUCTOKABIVEN [Suspect]
     Active Substance: AMINO ACIDS\DEXTROSE\ELECTROLYTES NOS
     Indication: PARENTERAL NUTRITION
     Dosage: UNK LIPID EMULSION DRUG START PERIOD 9 (DAYS)
  24. VANCOMYCIN [Suspect]
     Active Substance: VANCOMYCIN
     Indication: ABSCESS
     Dosage: 2 GRAM, QD
     Route: 042
     Dates: start: 20081220, end: 20090112
  25. PEVARYL                            /00418501/ [Suspect]
     Active Substance: ECONAZOLE NITRATE
     Dosage: UNK
     Route: 061
  26. SOLU-MEDROL [Suspect]
     Active Substance: METHYLPREDNISOLONE SODIUM SUCCINATE
     Indication: CROHN^S DISEASE
     Dosage: 60 MILLIGRAM
     Route: 048
     Dates: start: 20080811
  27. SOLU-MEDROL [Suspect]
     Active Substance: METHYLPREDNISOLONE SODIUM SUCCINATE
     Dosage: 100 MILLIGRAM
     Route: 042
     Dates: start: 20080120
  28. TIENAM [Suspect]
     Active Substance: CILASTATIN SODIUM\IMIPENEM
     Indication: PARENTERAL NUTRITION
     Dosage: UNK
  29. CALCIUM CARBONATE. [Suspect]
     Active Substance: CALCIUM CARBONATE
     Indication: PRODUCT USED FOR UNKNOWN INDICATION
     Dosage: 1 DOSAGE FORM, QD
     Route: 048
     Dates: start: 20081227
  30. FLUCONAZOLE. [Suspect]
     Active Substance: FLUCONAZOLE
     Dosage: 200 MILLIGRAM, QD, UNK, ? PARTIR DU 19 JANVIER 200 MG/JOUR
     Route: 048
     Dates: start: 20090119, end: 20090130
  31. AERIUS (DESLORATADINE) [Suspect]
     Active Substance: DESLORATADINE
     Dosage: UNK UNK, QD
     Route: 048
     Dates: start: 20090107
  32. STRUCTOKABIVEN [Suspect]
     Active Substance: AMINO ACIDS\DEXTROSE\ELECTROLYTES NOS
     Indication: MALNUTRITION
     Dosage: 4000 MILLILITER, QD
     Route: 041
     Dates: start: 20081228, end: 20090207
  33. TRIFLUCAN [Concomitant]
     Active Substance: FLUCONAZOLE
     Dosage: 100 MILLIGRAM, QD
     Route: 048
     Dates: start: 20090106, end: 20090118
  34. CLORAZEPATE DIPOTASSIUM. [Suspect]
     Active Substance: CLORAZEPATE DIPOTASSIUM
     Indication: ANXIETY
     Dosage: UNK UNK, QD
     Route: 042
     Dates: start: 20081222, end: 20090123
  35. REMICADE [Suspect]
     Active Substance: INFLIXIMAB
     Indication: CROHN^S DISEASE
     Dosage: UNK
     Route: 042
     Dates: start: 20081222, end: 20090112
  36. ALANINE [Suspect]
     Active Substance: ALANINE
     Indication: MALNUTRITION
     Dosage: UNK
     Route: 041

REACTIONS (3)
  - Hepatitis [Recovering/Resolving]
  - Weight decreased [Unknown]
  - Fungal test positive [Unknown]

NARRATIVE: CASE EVENT DATE: 20090106
